FAERS Safety Report 7381290-2 (Version None)
Quarter: 2011Q1

REPORT INFORMATION
  Report Type: 
  Country: None (occurrence: None)
  Receive Date: 20110321
  Receipt Date: 20110309
  Transmission Date: 20110831
  Serious: Yes (Other)
  Sender: FDA-Public Use
  Company Number: 027319

PATIENT
  Sex: Male

DRUGS (7)
  1. IMURAN [Concomitant]
  2. PROGESTERON [Concomitant]
  3. VIVELLE [Concomitant]
  4. ESTRADIOL [Concomitant]
  5. SULFASALAZINE [Concomitant]
  6. CIMZIA [Suspect]
     Indication: CROHN'S DISEASE
     Dosage: SEE IMAGE
     Route: 058
     Dates: start: 20100101
  7. FLAXSEED OIL [Concomitant]

REACTIONS (3)
  - PREMATURE BABY [None]
  - MATERNAL DRUGS AFFECTING FOETUS [None]
  - CAESAREAN SECTION [None]
